FAERS Safety Report 5662107-0 (Version None)
Quarter: 2008Q1

REPORT INFORMATION
  Report Type: 
  Country: None (occurrence: None)
  Receive Date: 20080212
  Receipt Date: 20071114
  Transmission Date: 20080703
  Serious: Yes (Hospitalization)
  Sender: FDA-Public Use
  Company Number: WAES 0709USA00574

PATIENT
  Age: 88 Year
  Sex: Male
  Weight: 65.7716 kg

DRUGS (2)
  1. FOSAMAX PLUS D [Suspect]
     Indication: OSTEOPOROSIS
     Dosage: 70 MG/DAILY/PO ; 70 MG/WK/PO
     Route: 048
     Dates: end: 20070823
  2. FOSAMAX PLUS D [Suspect]
     Indication: OSTEOPOROSIS
     Dosage: 70 MG/DAILY/PO ; 70 MG/WK/PO
     Route: 048
     Dates: start: 20070824, end: 20070830

REACTIONS (4)
  - ADVERSE EVENT [None]
  - DIARRHOEA [None]
  - INAPPROPRIATE SCHEDULE OF DRUG ADMINISTRATION [None]
  - OVERDOSE [None]
